FAERS Safety Report 19694211 (Version 7)
Quarter: 2022Q1

REPORT INFORMATION
  Report Type: Report from Study
  Country: CN (occurrence: CN)
  Receive Date: 20210812
  Receipt Date: 20220129
  Transmission Date: 20220424
  Serious: Yes (Hospitalization)
  Sender: FDA-Public Use
  Company Number: NVSC2021CN175343

PATIENT
  Age: 59 Year
  Sex: Female
  Weight: 46 kg

DRUGS (6)
  1. TYKERB [Suspect]
     Active Substance: LAPATINIB DITOSYLATE
     Indication: Breast cancer
     Dosage: 1500 MG, QD (STRENGTH 250 MG, TABLET)
     Route: 048
     Dates: start: 20201126, end: 20210308
  2. TYKERB [Suspect]
     Active Substance: LAPATINIB DITOSYLATE
     Dosage: 1000 MG, QD
     Route: 048
     Dates: start: 20210309
  3. CAPECITABINE [Suspect]
     Active Substance: CAPECITABINE
     Indication: Breast cancer
     Dosage: 1500 MG, BID (1500 MG IN THE MORNING, 1500 MG IN THE EVENING)
     Route: 048
     Dates: start: 20201126, end: 20210308
  4. CAPECITABINE [Suspect]
     Active Substance: CAPECITABINE
     Dosage: 2000 MG  DAY ON ODD DAYS AND 2500 MG (DAY ON EVEN DAYS)
     Route: 048
     Dates: start: 20210309, end: 20210531
  5. CAPECITABINE [Suspect]
     Active Substance: CAPECITABINE
     Dosage: UNK
     Route: 065
     Dates: start: 20210720
  6. CAPECITABINE [Suspect]
     Active Substance: CAPECITABINE
     Dosage: 1500 MG, QD (1000 MG IN THE MORNING, 500 MG IN THE EVENING)/ LAST RECE NT DOSE ON 18 JUL 2021
     Route: 048
     Dates: start: 20210601, end: 20211221

REACTIONS (12)
  - Laryngeal mass [Recovered/Resolved]
  - Dysphonia [Unknown]
  - Vocal cord cyst [Recovered/Resolved]
  - Laryngeal neoplasm [Recovered/Resolved]
  - Ulcer [Not Recovered/Not Resolved]
  - Palmar-plantar erythrodysaesthesia syndrome [Unknown]
  - Dysaesthesia pharynx [Not Recovered/Not Resolved]
  - Hyperaemia [Unknown]
  - Hyperplasia [Unknown]
  - Haemangioma [Unknown]
  - Oedema mucosal [Unknown]
  - Oropharyngeal swelling [Unknown]

NARRATIVE: CASE EVENT DATE: 20210620
